FAERS Safety Report 7204136-1 (Version None)
Quarter: 2010Q4

REPORT INFORMATION
  Report Type: 
  Country: None (occurrence: None)
  Receive Date: 20101230
  Receipt Date: 20101222
  Transmission Date: 20110411
  Serious: Yes (Other)
  Sender: FDA-Public Use
  Company Number: HU-ROCHE-739017

PATIENT
  Age: 53 Year
  Sex: Female
  Weight: 57 kg

DRUGS (4)
  1. ROACTEMRA [Suspect]
     Dosage: DOSE MAINTAINED
     Route: 065
     Dates: start: 20100120, end: 20100120
  2. ROACTEMRA [Suspect]
     Dosage: DOSE MAINTAINED
     Route: 065
     Dates: start: 20100426, end: 20100426
  3. ROACTEMRA [Suspect]
     Dosage: DOSE MAINTAINED
     Route: 065
     Dates: start: 20100526, end: 20100526
  4. ROACTEMRA [Suspect]
     Dosage: DOSE MAINTAINED
     Route: 065
     Dates: end: 20100801

REACTIONS (2)
  - CEREBRAL INFARCTION [None]
  - HEPATIC ENZYME INCREASED [None]
